FAERS Safety Report 4765310-7 (Version None)
Quarter: 2005Q3

REPORT INFORMATION
  Report Type: 
  Country: None (occurrence: None)
  Receive Date: 20050909
  Receipt Date: 20050324
  Transmission Date: 20060218
  Serious: Yes (Death, Hospitalization)
  Sender: FDA-Public Use
  Company Number: US-MERCK-0503USA04605

PATIENT
  Age: 61 Year
  Sex: Male
  Weight: 90 kg

DRUGS (10)
  1. VIOXX [Suspect]
     Indication: ARTHRALGIA
     Route: 048
     Dates: start: 19990101, end: 20031206
  2. VIOXX [Suspect]
     Indication: BACK PAIN
     Route: 048
     Dates: start: 19990101, end: 20031206
  3. LIPITOR [Concomitant]
     Indication: BLOOD CHOLESTEROL INCREASED
     Route: 065
     Dates: start: 20000101, end: 20030101
  4. KEFLEX [Concomitant]
     Route: 065
     Dates: start: 20010101
  5. ZYRTEC [Concomitant]
     Route: 065
  6. SYNVISC [Concomitant]
     Indication: ARTHRALGIA
     Route: 065
     Dates: start: 20010101
  7. SYNVISC [Concomitant]
     Indication: BACK PAIN
     Route: 065
     Dates: start: 20010101
  8. ASPIRIN [Concomitant]
     Indication: PROPHYLAXIS
     Route: 065
     Dates: start: 20010101
  9. VOLTAREN [Concomitant]
     Route: 065
     Dates: start: 19990101
  10. HYPERICIN [Concomitant]
     Route: 065
     Dates: start: 19990101

REACTIONS (10)
  - ANXIETY [None]
  - BACK DISORDER [None]
  - COAGULOPATHY [None]
  - CORONARY ARTERY THROMBOSIS [None]
  - HYPERTENSION [None]
  - MYOCARDIAL INFARCTION [None]
  - SLEEP APNOEA SYNDROME [None]
  - SPINAL CORD DISORDER [None]
  - STAPHYLOCOCCAL INFECTION [None]
  - SYNOVIAL CYST [None]
